FAERS Safety Report 13359282 (Version 2)
Quarter: 2017Q2

REPORT INFORMATION
  Report Type: Spontaneous
  Country: US (occurrence: US)
  Receive Date: 20170322
  Receipt Date: 20170418
  Transmission Date: 20170830
  Serious: Yes (Hospitalization)
  Sender: FDA-Public Use
  Company Number: US-SA-2017SA043673

PATIENT
  Age: 83 Year
  Sex: Female

DRUGS (4)
  1. SOLOSTAR [Concomitant]
     Active Substance: DEVICE
  2. LANTUS SOLOSTAR [Suspect]
     Active Substance: INSULIN GLARGINE
     Indication: DIABETES MELLITUS
     Dosage: 6 UNITS WITH HER THREE MEALS, THEN 7 UNITS BEFORE?BED.
     Route: 065
  3. SOLOSTAR [Concomitant]
     Active Substance: DEVICE
  4. LANTUS SOLOSTAR [Suspect]
     Active Substance: INSULIN GLARGINE
     Indication: DIABETES MELLITUS
     Dosage: 6 UNITS WITH HER THREE MEALS, THEN 7 UNITS BEFORE?BED.
     Route: 065

REACTIONS (4)
  - Intentional product misuse [Unknown]
  - Blood glucose decreased [Unknown]
  - Hospitalisation [Unknown]
  - Product use issue [Unknown]
